FAERS Safety Report 20033171 (Version 8)
Quarter: 2022Q1

REPORT INFORMATION
  Report Type: Report from Study
  Country: US (occurrence: US)
  Receive Date: 20211104
  Receipt Date: 20220223
  Transmission Date: 20220423
  Serious: No
  Sender: FDA-Public Use
  Company Number: US-NOVARTISTESTPH-NVSC2021US252294

PATIENT
  Sex: Male

DRUGS (1)
  1. ENTRESTO [Suspect]
     Active Substance: SACUBITRIL\VALSARTAN
     Indication: Cardiac failure chronic
     Dosage: 0.5 DOSAGE FORM, BID (HALF)
     Route: 048
     Dates: start: 202110

REACTIONS (8)
  - Nocturia [Unknown]
  - Weight increased [Unknown]
  - Chest discomfort [Unknown]
  - Hypertension [Unknown]
  - Headache [Unknown]
  - Off label use [Unknown]
  - Wrong technique in product usage process [Unknown]
  - Incorrect dose administered [Unknown]
